FAERS Safety Report 6024095-7 (Version None)
Quarter: 2008Q4

REPORT INFORMATION
  Report Type: 
  Country: None (occurrence: None)
  Receive Date: 20081230
  Receipt Date: 20081216
  Transmission Date: 20090506
  Serious: Yes (Death)
  Sender: FDA-Public Use
  Company Number: PL-GENENTECH-274253

PATIENT
  Age: 59 Year
  Sex: Female

DRUGS (1)
  1. AVASTIN [Suspect]
     Indication: RENAL CANCER
     Dosage: 600 MG, UNK
     Dates: start: 20081208

REACTIONS (3)
  - BLOOD PRESSURE FLUCTUATION [None]
  - HAEMOPTYSIS [None]
  - PULMONARY OEDEMA [None]
